FAERS Safety Report 7431154-0 (Version None)
Quarter: 2011Q2

REPORT INFORMATION
  Report Type: 
  Country: None (occurrence: None)
  Receive Date: 20110421
  Receipt Date: 20110407
  Transmission Date: 20111010
  Serious: Yes (Other)
  Sender: FDA-Public Use
  Company Number: DE-WATSON-2011-05191

PATIENT
  Sex: Male

DRUGS (1)
  1. TRELSTAR [Suspect]
     Indication: PROSTATE CANCER
     Dosage: UNK
     Route: 030
     Dates: start: 20090921

REACTIONS (5)
  - FATIGUE [None]
  - DEAFNESS [None]
  - BONE PAIN [None]
  - DIZZINESS [None]
  - ARTHRALGIA [None]
